FAERS Safety Report 7600179-4 (Version None)
Quarter: 2011Q2

REPORT INFORMATION
  Report Type: 
  Country: None (occurrence: None)
  Receive Date: 20110629
  Receipt Date: 20110616
  Transmission Date: 20111010
  Serious: Yes (Death, Hospitalization, Other)
  Sender: FDA-Public Use
  Company Number: 2011MA007657

PATIENT
  Age: 71 Year
  Sex: Female

DRUGS (4)
  1. FAMOTIDINE [Concomitant]
  2. VERAPAMIL HYDROCHLORIDE [Suspect]
  3. INSULIN [Concomitant]
  4. LISINOPRIL [Concomitant]

REACTIONS (13)
  - VOMITING [None]
  - HAEMODIALYSIS [None]
  - NAUSEA [None]
  - ACUTE HEPATIC FAILURE [None]
  - ACTIVATED PARTIAL THROMBOPLASTIN TIME PROLONGED [None]
  - GENERAL PHYSICAL HEALTH DETERIORATION [None]
  - METABOLIC ACIDOSIS [None]
  - HEPATOMEGALY [None]
  - DISSEMINATED INTRAVASCULAR COAGULATION [None]
  - MULTI-ORGAN FAILURE [None]
  - RENAL FAILURE [None]
  - MYALGIA [None]
  - PROTHROMBIN TIME PROLONGED [None]
